FAERS Safety Report 4711517-4 (Version None)
Quarter: 2005Q3

REPORT INFORMATION
  Report Type: 
  Country: None (occurrence: None)
  Receive Date: 20050711
  Receipt Date: 20050711
  Transmission Date: 20060218
  Serious: Yes (Hospitalization)
  Sender: FDA-Public Use
  Company Number: None

PATIENT
  Age: 40 Year
  Sex: Female
  Weight: 67 kg

DRUGS (8)
  1. ZELNORM [Suspect]
     Dosage: ORAL
     Route: 048
     Dates: start: 20050521, end: 20050530
  2. PAXIL [Concomitant]
  3. LOPRESSOR [Concomitant]
  4. GABITRIL [Concomitant]
  5. BUSPAR [Concomitant]
  6. KLONOPIN [Concomitant]
  7. SEROQUEL [Concomitant]
  8. METHADONE [Concomitant]

REACTIONS (2)
  - VENTRICULAR EXTRASYSTOLES [None]
  - VENTRICULAR TACHYCARDIA [None]
